FAERS Safety Report 7146559-5 (Version None)
Quarter: 2010Q4

REPORT INFORMATION
  Report Type: 
  Country: None (occurrence: None)
  Receive Date: 20101208
  Receipt Date: 20101125
  Transmission Date: 20110411
  Serious: Yes (Hospitalization)
  Sender: FDA-Public Use
  Company Number: PL-MYLANLABS-2010S1021947

PATIENT
  Age: 60 Year
  Sex: Female

DRUGS (3)
  1. LORATADINE [Suspect]
     Indication: PRURITUS
     Route: 048
  2. PERINDOPRIL [Concomitant]
     Indication: HYPERTENSION
     Route: 065
  3. BISOPROLOL [Concomitant]
     Indication: HYPERTENSION
     Route: 065

REACTIONS (9)
  - ALANINE AMINOTRANSFERASE INCREASED [None]
  - ASPARTATE AMINOTRANSFERASE INCREASED [None]
  - BLOOD GLUCOSE INCREASED [None]
  - BURNING SENSATION [None]
  - DYSPNOEA [None]
  - MALAISE [None]
  - SKIN DISCOLOURATION [None]
  - SKIN EXFOLIATION [None]
  - URTICARIA [None]
